FAERS Safety Report 17941097 (Version 1)
Quarter: 2020Q2

REPORT INFORMATION
  Report Type: Spontaneous
  Country: US (occurrence: US)
  Receive Date: 20200624
  Receipt Date: 20200624
  Transmission Date: 20200714
  Serious: Yes (Other)
  Sender: FDA-Public Use
  Company Number: None

PATIENT
  Age: 69 Year
  Sex: Male
  Weight: 110.5 kg

DRUGS (19)
  1. ASPIRIN EC 81MG DAILY [Concomitant]
     Dates: start: 20200614
  2. PRECEDEX INFUSION [Concomitant]
     Dates: start: 20200615, end: 20200616
  3. ENOXAPARIN 40MG DAILY [Concomitant]
     Dates: start: 20200614
  4. PROPOFOL INFUSION [Concomitant]
     Active Substance: PROPOFOL
     Dates: start: 20200616
  5. AMIODARONE INFUSION [Concomitant]
     Dates: start: 20200621, end: 20200621
  6. ALBUMIN 12.5-25 GRAMS IV [Concomitant]
     Dates: start: 20200616, end: 20200616
  7. FAMOTIDINE 20MG IV Q12H [Concomitant]
     Dates: start: 20200614
  8. AMIODARONE 200MG PO BID [Concomitant]
     Dates: start: 20200622
  9. ATORVASTATIN 40MG QHS [Concomitant]
     Dates: start: 20200614
  10. DEXAMETHASONE 6MG IV DAILY [Concomitant]
     Dates: start: 20200616, end: 20200619
  11. MIDAZOLAM INFUSION [Concomitant]
     Active Substance: MIDAZOLAM HYDROCHLORIDE
     Dates: start: 20200623
  12. NICARDIPINE INFUSION [Concomitant]
     Dates: start: 20200615, end: 20200616
  13. CEFTRIAXONE 1G IV DAILY [Concomitant]
     Dates: start: 20200614, end: 20200614
  14. REMDESIVIR. [Suspect]
     Active Substance: REMDESIVIR
     Dosage: ?          OTHER FREQUENCY:200MG D1, 100MG/D;?
     Route: 042
     Dates: start: 20200614, end: 20200618
  15. FENTANYL INFUSION [Concomitant]
     Active Substance: FENTANYL
     Dates: start: 20200616
  16. AZITHROMYCIN 500MG IV Q24H [Concomitant]
     Dates: start: 20200614
  17. CARVEDILOL 6.25MG PO BID [Concomitant]
     Dates: start: 20200614, end: 20200616
  18. INSULIN LISPRO SLIDING SCALE 4X/DAY [Concomitant]
     Dates: start: 20200617
  19. NOREPINEPHRINE INFUSION [Concomitant]
     Dates: start: 20200616, end: 20200622

REACTIONS (10)
  - Tachypnoea [None]
  - Pneumonia [None]
  - COVID-19 [None]
  - Fibrin D dimer increased [None]
  - Tachycardia [None]
  - Renal failure [None]
  - Leukocytosis [None]
  - Acute respiratory distress syndrome [None]
  - Hypercalcaemia [None]
  - Hypoxia [None]

NARRATIVE: CASE EVENT DATE: 20200616
